FAERS Safety Report 4895156-0 (Version None)
Quarter: 2006Q1

REPORT INFORMATION
  Report Type: 
  Country: None (occurrence: None)
  Receive Date: 20060124
  Receipt Date: 20060111
  Transmission Date: 20060701
  Serious: Yes (Hospitalization)
  Sender: FDA-Public Use
  Company Number: 2006007946

PATIENT
  Age: 76 Year
  Sex: Female

DRUGS (2)
  1. LINCOMYCIN HCL [Suspect]
     Indication: UPPER RESPIRATORY TRACT INFECTION
     Dosage: INTRAVENOUS
     Route: 042
  2. ACETYLCHOLINE CHLORIDE (ACETYLCHOLINE CHLORIDE) [Concomitant]

REACTIONS (6)
  - ALPHA HAEMOLYTIC STREPTOCOCCAL INFECTION [None]
  - CANDIDIASIS [None]
  - PSORIASIS [None]
  - RASH ERYTHEMATOUS [None]
  - RASH GENERALISED [None]
  - SKIN NECROSIS [None]
